FAERS Safety Report 9055476 (Version 1)
Quarter: 2013Q1

REPORT INFORMATION
  Report Type: Spontaneous
  Country: FR (occurrence: FR)
  Receive Date: 20130206
  Receipt Date: 20130206
  Transmission Date: 20140127
  Serious: Yes (Other)
  Sender: FDA-Public Use
  Company Number: FR-ASTRAZENECA-2013SE07605

PATIENT
  Age: 15153 Day
  Sex: Female

DRUGS (3)
  1. SYMBICORT TURBUHALER [Suspect]
     Indication: ASTHMA
     Dosage: 400/12 UG PER DOSE 3 DF ONCE/SINGLE ADMINISTRATION
     Route: 055
     Dates: start: 20130131, end: 20130131
  2. SYMBICORT TURBUHALER [Suspect]
     Indication: ASTHMA
     Dosage: 400/12 UG PER DOSE 1 DF TWO TIMES A DAY
     Route: 055
     Dates: start: 20130131
  3. VENTOLINE [Concomitant]

REACTIONS (3)
  - Overdose [Recovered/Resolved]
  - Hyperhidrosis [Recovered/Resolved]
  - Tremor [Recovered/Resolved]
